FAERS Safety Report 21843523 (Version 1)
Quarter: 2023Q1

REPORT INFORMATION
  Report Type: Spontaneous
  Country: US (occurrence: None)
  Receive Date: 20230108
  Receipt Date: 20230108
  Transmission Date: 20230417
  Serious: Yes (Other)
  Sender: FDA-Public Use
  Company Number: None

PATIENT
  Age: 21 Year
  Sex: Female

DRUGS (2)
  1. AMMONIA INHALANTS [Suspect]
     Active Substance: AMMONIA
     Indication: Asthenia
  2. UNSPECIFIED INGREDIENT [Concomitant]
     Active Substance: UNSPECIFIED INGREDIENT

REACTIONS (5)
  - Seizure [None]
  - Diarrhoea [None]
  - Vomiting [None]
  - Abdominal pain [None]
  - Product complaint [None]

NARRATIVE: CASE EVENT DATE: 20230106
